FAERS Safety Report 25245845 (Version 2)
Quarter: 2025Q2

REPORT INFORMATION
  Report Type: Spontaneous
  Country: US (occurrence: US)
  Receive Date: 20250428
  Receipt Date: 20250515
  Transmission Date: 20250717
  Serious: Yes (Death, Other)
  Sender: SANOFI AVENTIS
  Company Number: US-SANOFI-02500870

PATIENT
  Age: 67 Year
  Sex: Male

DRUGS (11)
  1. DUPIXENT [Suspect]
     Active Substance: DUPILUMAB
     Indication: Dermatitis atopic
     Route: 058
     Dates: start: 20250411, end: 20250411
  2. DUPIXENT [Suspect]
     Active Substance: DUPILUMAB
     Indication: Eczema
  3. ENTRESTO [Concomitant]
     Active Substance: SACUBITRIL\VALSARTAN
     Indication: Oedema
  4. ENTRESTO [Concomitant]
     Active Substance: SACUBITRIL\VALSARTAN
     Indication: Cardiac failure congestive
  5. PREDNISONE [Concomitant]
     Active Substance: PREDNISONE
  6. FUROSEMIDE [Concomitant]
     Active Substance: FUROSEMIDE
  7. ALLOPURINOL [Concomitant]
     Active Substance: ALLOPURINOL
  8. ASPIRIN [Concomitant]
     Active Substance: ASPIRIN
  9. CARVEDILOL [Concomitant]
     Active Substance: CARVEDILOL
  10. COLCHICINE [Concomitant]
     Active Substance: COLCHICINE
  11. ATORVASTATIN [Concomitant]
     Active Substance: ATORVASTATIN

REACTIONS (1)
  - Cardiac arrest [Fatal]

NARRATIVE: CASE EVENT DATE: 20250411
